FAERS Safety Report 22197043 (Version 1)
Quarter: 2023Q2

REPORT INFORMATION
  Report Type: Other
  Country: US (occurrence: None)
  Receive Date: 20230411
  Receipt Date: 20230411
  Transmission Date: 20230721
  Serious: Yes (Other)
  Sender: FDA-Public Use
  Company Number: US-ROCHE-3325270

PATIENT
  Age: 31 Year
  Sex: Female
  Weight: 90.800 kg

DRUGS (12)
  1. OCREVUS [Suspect]
     Active Substance: OCRELIZUMAB
     Indication: Relapsing-remitting multiple sclerosis
     Route: 042
     Dates: end: 202209
  2. OCREVUS [Suspect]
     Active Substance: OCRELIZUMAB
     Route: 042
  3. GABAPENTIN [Concomitant]
     Active Substance: GABAPENTIN
  4. BACLOFEN [Concomitant]
     Active Substance: BACLOFEN
  5. LEXAPRO [Concomitant]
     Active Substance: ESCITALOPRAM OXALATE
  6. MAGNESIUM GLYCINATE [Concomitant]
     Active Substance: MAGNESIUM GLYCINATE
  7. TIZANIDINE [Concomitant]
     Active Substance: TIZANIDINE
  8. MODAFINIL [Concomitant]
     Active Substance: MODAFINIL
  9. OMEPRAZOLE [Concomitant]
     Active Substance: OMEPRAZOLE
  10. AMITRIPTYLINE [Concomitant]
     Active Substance: AMITRIPTYLINE
  11. SCOPOLAMINE [Concomitant]
     Active Substance: SCOPOLAMINE
  12. OZEMPIC [Concomitant]
     Active Substance: SEMAGLUTIDE

REACTIONS (8)
  - Deafness transitory [Not Recovered/Not Resolved]
  - Off label use [Unknown]
  - Meniere^s disease [Not Recovered/Not Resolved]
  - Hiccups [Not Recovered/Not Resolved]
  - Neutropenia [Not Recovered/Not Resolved]
  - Uterine polyp [Not Recovered/Not Resolved]
  - Deafness [Recovered/Resolved]
  - Uterine enlargement [Not Recovered/Not Resolved]

NARRATIVE: CASE EVENT DATE: 20180101
